FAERS Safety Report 5415080-4 (Version None)
Quarter: 2007Q3

REPORT INFORMATION
  Report Type: 
  Country: None (occurrence: None)
  Receive Date: 20070815
  Receipt Date: 20070518
  Transmission Date: 20080115
  Serious: No
  Sender: FDA-Public Use
  Company Number: A0652038A

PATIENT
  Age: 58 Year
  Sex: Male

DRUGS (2)
  1. COREG CR [Suspect]
     Dosage: 80MG PER DAY
     Route: 048
  2. LISINOPRIL [Concomitant]

REACTIONS (2)
  - HEART RATE INCREASED [None]
  - SOMNOLENCE [None]
